FAERS Safety Report 7936048-X (Version None)
Quarter: 2011Q4

REPORT INFORMATION
  Report Type: 
  Country: None (occurrence: None)
  Receive Date: 20111123
  Receipt Date: 20111116
  Transmission Date: 20120403
  Serious: Yes (Other)
  Sender: FDA-Public Use
  Company Number: US-US-EMD SERONO, INC.-7096665

PATIENT
  Sex: Male
  Weight: 79 kg

DRUGS (4)
  1. REBIF [Suspect]
     Route: 058
     Dates: start: 20101116
  2. PRILOSEC [Concomitant]
     Indication: GASTROOESOPHAGEAL REFLUX DISEASE
  3. FLOMAX [Concomitant]
     Indication: PROSTATOMEGALY
  4. REBIF [Suspect]
     Indication: MULTIPLE SCLEROSIS
     Route: 058

REACTIONS (3)
  - INJECTION SITE ANAESTHESIA [None]
  - BRAIN NEOPLASM [None]
  - INJECTION SITE SWELLING [None]
